FAERS Safety Report 21981972 (Version 1)
Quarter: 2023Q1

REPORT INFORMATION
  Report Type: Report from Study
  Country: EG (occurrence: EG)
  Receive Date: 20230212
  Receipt Date: 20230212
  Transmission Date: 20230417
  Serious: Yes (Other)
  Sender: FDA-Public Use
  Company Number: EG-002147023-NVSC2023EG029259

PATIENT
  Age: 25 Year
  Sex: Male

DRUGS (4)
  1. COSENTYX [Suspect]
     Active Substance: SECUKINUMAB
     Indication: Psoriatic arthropathy
     Dosage: 1 DOSAGE FORM, QMO
     Route: 058
     Dates: start: 20221013, end: 202212
  2. COSYNTROPIN [Concomitant]
     Active Substance: COSYNTROPIN
     Indication: Inflammation
     Dosage: UNK, QW
     Route: 065
     Dates: start: 202206
  3. DICLOFENAC [Concomitant]
     Active Substance: DICLOFENAC
     Indication: Product used for unknown indication
     Dosage: UNK
     Route: 065
     Dates: start: 202206
  4. DICLOFENAC SODIUM [Concomitant]
     Active Substance: DICLOFENAC SODIUM
     Indication: Analgesic intervention supportive therapy
     Dosage: UNK, BID
     Route: 065
     Dates: start: 202206

REACTIONS (3)
  - Psoriatic arthropathy [Not Recovered/Not Resolved]
  - Bone pain [Recovered/Resolved]
  - Product use issue [Recovered/Resolved]

NARRATIVE: CASE EVENT DATE: 20221013
